FAERS Safety Report 24268459 (Version 1)
Quarter: 2024Q3

REPORT INFORMATION
  Report Type: Spontaneous
  Country: US (occurrence: None)
  Receive Date: 20240829
  Receipt Date: 20240829
  Transmission Date: 20241017
  Serious: Yes (Other)
  Sender: Public
  Company Number: None

PATIENT
  Age: 47 Year
  Sex: Female
  Weight: 108 kg

DRUGS (5)
  1. BUPRENORPHINE HYDROCHLORIDE [Suspect]
     Active Substance: BUPRENORPHINE HYDROCHLORIDE
     Indication: Pain management
     Route: 060
  2. BUPRENORPHINE [Concomitant]
     Active Substance: BUPRENORPHINE
  3. BUPROPION [Concomitant]
     Active Substance: BUPROPION
  4. ELIQUIS [Concomitant]
     Active Substance: APIXABAN
  5. TYLENOL [Concomitant]
     Active Substance: ACETAMINOPHEN

REACTIONS (3)
  - Dental caries [None]
  - Tooth disorder [None]
  - Product communication issue [None]

NARRATIVE: CASE EVENT DATE: 20180101
